FAERS Safety Report 17485678 (Version 1)
Quarter: 2020Q1

REPORT INFORMATION
  Report Type: Report from Study
  Country: None (occurrence: US)
  Receive Date: 20200302
  Receipt Date: 20200302
  Transmission Date: 20200409
  Serious: Yes (Hospitalization)
  Sender: FDA-Public Use
  Company Number: US-ABBVIE-20K-163-3223068-00

PATIENT
  Sex: Female
  Weight: 86.26 kg

DRUGS (2)
  1. HUMIRA [Suspect]
     Active Substance: ADALIMUMAB
     Dosage: FOR 20 DEC 2019 HUMIRA SHOT LOT NUMBER 1120879
     Route: 058
     Dates: end: 20191223
  2. HUMIRA [Suspect]
     Active Substance: ADALIMUMAB
     Indication: RHEUMATOID ARTHRITIS
     Dosage: FOR 6 DEC 2019 HUMIRA SHOT LOT NUMBER 1109033
     Route: 058
     Dates: start: 20170630

REACTIONS (6)
  - Hypertension [Unknown]
  - Malaise [Not Recovered/Not Resolved]
  - Epistaxis [Unknown]
  - Transient ischaemic attack [Recovered/Resolved]
  - White blood cell count increased [Not Recovered/Not Resolved]
  - Gait inability [Unknown]
